FAERS Safety Report 13913561 (Version 1)
Quarter: 2017Q3

REPORT INFORMATION
  Report Type: Spontaneous
  Country: US (occurrence: US)
  Receive Date: 20170828
  Receipt Date: 20170828
  Transmission Date: 20171127
  Serious: No
  Sender: FDA-Public Use
  Company Number: US-ROCHE-1137416

PATIENT
  Sex: Male
  Weight: 91.71 kg

DRUGS (2)
  1. NUTROPIN [Suspect]
     Active Substance: SOMATROPIN
     Indication: HYPOPITUITARISM
     Route: 058
  2. TESTOSTERONE. [Concomitant]
     Active Substance: TESTOSTERONE

REACTIONS (11)
  - Asthenia [Unknown]
  - Clavicle fracture [Unknown]
  - Arthralgia [Unknown]
  - Central obesity [Unknown]
  - Hunger [Unknown]
  - Obesity [Unknown]
  - Upper limb fracture [Unknown]
  - Fatigue [Unknown]
  - Weight increased [Unknown]
  - Device malfunction [Unknown]
  - Ligament rupture [Unknown]
